FAERS Safety Report 23618317 (Version 1)
Quarter: 2024Q1

REPORT INFORMATION
  Report Type: Spontaneous
  Country: CN (occurrence: CN)
  Receive Date: 20240311
  Receipt Date: 20240311
  Transmission Date: 20240409
  Serious: Yes (Other)
  Sender: FDA-Public Use
  Company Number: CN-ViiV Healthcare Limited-CN2024APC028675

PATIENT

DRUGS (1)
  1. DOVATO [Suspect]
     Active Substance: DOLUTEGRAVIR SODIUM\LAMIVUDINE
     Indication: Immunodeficiency
     Dosage: 1 DF, QD 350MG X 30 TABLETS
     Route: 048
     Dates: start: 20231031, end: 20240303

REACTIONS (3)
  - Liver injury [Unknown]
  - Drug-induced liver injury [Unknown]
  - Blood triglycerides increased [Unknown]

NARRATIVE: CASE EVENT DATE: 20240125
